FAERS Safety Report 18527244 (Version 1)
Quarter: 2020Q4

REPORT INFORMATION
  Report Type: Spontaneous
  Country: GB (occurrence: GB)
  Receive Date: 20201120
  Receipt Date: 20201120
  Transmission Date: 20210114
  Serious: Yes (Hospitalization)
  Sender: FDA-Public Use
  Company Number: GB-PFIZER INC-2020454224

PATIENT
  Age: 55 Year
  Sex: Male

DRUGS (1)
  1. DOCETAXEL. [Suspect]
     Active Substance: DOCETAXEL
     Indication: PROSTATE CANCER
     Dosage: FREQ:{CYCLICAL};75 MG/M2, QCY
     Route: 042
     Dates: start: 20180327, end: 20180327

REACTIONS (2)
  - Pyrexia [Unknown]
  - Haemorrhoids thrombosed [Unknown]

NARRATIVE: CASE EVENT DATE: 2018
